FAERS Safety Report 4752261-7 (Version None)
Quarter: 2005Q3

REPORT INFORMATION
  Report Type: 
  Country: None (occurrence: None)
  Receive Date: 20050825
  Receipt Date: 20050816
  Transmission Date: 20060218
  Serious: Yes (Hospitalization)
  Sender: FDA-Public Use
  Company Number: 2005CG01388

PATIENT
  Age: 41 Year
  Sex: Male

DRUGS (3)
  1. OMEPRAZOLE [Suspect]
     Route: 048
     Dates: start: 20050620, end: 20050620
  2. CLAMOXYL [Suspect]
     Route: 048
     Dates: start: 20050620, end: 20050620
  3. ZECLAR [Suspect]
     Route: 048
     Dates: start: 20050620, end: 20050620

REACTIONS (3)
  - CHOLESTASIS [None]
  - CYTOLYTIC HEPATITIS [None]
  - MYALGIA [None]
